FAERS Safety Report 7863137 (Version 2)
Quarter: 2013Q1

REPORT INFORMATION
  Report Type: Report from Study
  Country: US (occurrence: US)
  Receive Date: 20110318
  Receipt Date: 20130228
  Transmission Date: 20140127
  Serious: Yes (Hospitalization)
  Sender: FDA-Public Use
  Company Number: US-RB-023869-11

PATIENT
  Age: 55 Year
  Sex: Male

DRUGS (3)
  1. SUBOXONE TABLET [Suspect]
     Indication: DRUG DEPENDENCE
     Dosage: HAS BEEN ON AND OFF THE TREATMENT
     Route: 060
     Dates: start: 2009, end: 2011
  2. SUBOXONE TABLET [Suspect]
     Dosage: DOSING DETAILS UNKNOWN; TAPERED DOSES
     Route: 060
     Dates: start: 2011, end: 2011
  3. CONSTIPATION MEDICATION [Concomitant]
     Indication: CONSTIPATION
     Dosage: DOSING DETAILS UNKNOWN
     Route: 065
     Dates: end: 2011

REACTIONS (5)
  - Gallbladder disorder [Recovered/Resolved]
  - Asthenia [Recovered/Resolved]
  - Drug dependence [Recovered/Resolved]
  - Insomnia [Recovered/Resolved]
  - Abnormal dreams [Recovered/Resolved]
